FAERS Safety Report 5115138-3 (Version None)
Quarter: 2006Q3

REPORT INFORMATION
  Report Type: 
  Country: None (occurrence: None)
  Receive Date: 20060925
  Receipt Date: 20060925
  Transmission Date: 20061208
  Serious: Yes (Other)
  Sender: FDA-Public Use
  Company Number: None

PATIENT
  Sex: Male
  Weight: 47.6 kg

DRUGS (2)
  1. ENDOMARK (ENDOSCOPIC INK MARKER) [Suspect]
     Indication: ENDOSCOPY
     Dosage: 10CC INJECTED INTO COLON TISSUE
     Dates: start: 20060921
  2. ENDOMARK (ENDOSCOPIC INK MARKER) [Suspect]
     Indication: ENDOSCOPY
     Dosage: 10CC INJECTED INTO COLON TISSUE
     Dates: start: 20060923

REACTIONS (1)
  - DRUG INEFFECTIVE [None]
